FAERS Safety Report 13616544 (Version 1)
Quarter: 2017Q2

REPORT INFORMATION
  Report Type: Spontaneous
  Country: US (occurrence: US)
  Receive Date: 20170606
  Receipt Date: 20170606
  Transmission Date: 20170830
  Serious: Yes (Disabling)
  Sender: FDA-Public Use
  Company Number: None

PATIENT
  Age: 38 Year
  Sex: Female
  Weight: 65.25 kg

DRUGS (10)
  1. PEPCID [Concomitant]
     Active Substance: FAMOTIDINE
  2. IBUPROFEN. [Concomitant]
     Active Substance: IBUPROFEN
  3. GLUTATHIONE [Concomitant]
     Active Substance: GLUTATHIONE
  4. NIACINAMIDE [Concomitant]
     Active Substance: NIACINAMIDE
  5. MAGNESIUM [Concomitant]
     Active Substance: MAGNESIUM
  6. ALA [Concomitant]
  7. B VITAMINS [Concomitant]
     Active Substance: CYANOCOBALAMIN\DEXPANTHENOL\NIACINAMIDE\PYRIDOXINE HYDROCHLORIDE\RIBOFLAVIN 5^-PHOSPHATE SODIUM\THIAMINE HYDROCHLORIDE\VITAMIN B COMPLEX
  8. LEVAQUIN [Suspect]
     Active Substance: LEVOFLOXACIN
     Indication: PNEUMONIA
     Route: 048
  9. FIORICET [Concomitant]
     Active Substance: ACETAMINOPHEN\BUTALBITAL\CAFFEINE
  10. SOD [Concomitant]

REACTIONS (24)
  - Fatigue [None]
  - Dental caries [None]
  - Helicobacter infection [None]
  - Fibromyalgia [None]
  - Dehydration [None]
  - Tendon rupture [None]
  - Food intolerance [None]
  - Plantar fasciitis [None]
  - Nervous system disorder [None]
  - Depression [None]
  - Myalgia [None]
  - Exercise tolerance decreased [None]
  - Hormone level abnormal [None]
  - Ovarian cyst [None]
  - Anxiety [None]
  - Gastrointestinal disorder [None]
  - Clostridium test positive [None]
  - Depressed level of consciousness [None]
  - Tendon disorder [None]
  - Asthma [None]
  - Neuralgia [None]
  - Multiple chemical sensitivity [None]
  - Arthralgia [None]
  - Back pain [None]

NARRATIVE: CASE EVENT DATE: 20121221
